FAERS Safety Report 25911987 (Version 4)
Quarter: 2025Q4

REPORT INFORMATION
  Report Type: Report from Study
  Country: EU (occurrence: EU)
  Receive Date: 20251013
  Receipt Date: 20251125
  Transmission Date: 20260117
  Serious: Yes (Other)
  Sender: EMD SERONO INC
  Company Number: EU-Merck Healthcare KGaA-2025029889

PATIENT
  Age: 30 Year
  Sex: Female

DRUGS (2)
  1. REBIF [Suspect]
     Active Substance: INTERFERON BETA-1A
     Indication: Relapsing-remitting multiple sclerosis
     Dosage: REBIF START DATE JUN-2023 OR JUL-2023
  2. REBIF [Suspect]
     Active Substance: INTERFERON BETA-1A
     Dates: start: 202502, end: 20250512

REACTIONS (3)
  - Foetal death [Recovered/Resolved]
  - Placental insufficiency [Unknown]
  - Maternal exposure during pregnancy [Recovered/Resolved]

NARRATIVE: CASE EVENT DATE: 20241201
